FAERS Safety Report 9801643 (Version 2)
Quarter: 2014Q1

REPORT INFORMATION
  Report Type: Report from Study
  Country: CA (occurrence: CA)
  Receive Date: 20140107
  Receipt Date: 20140214
  Transmission Date: 20141002
  Serious: Yes (Death, Hospitalization)
  Sender: FDA-Public Use
  Company Number: CA-IPSEN BIOPHARMACEUTICALS, INC.-2014-0024

PATIENT
  Age: 73 Year
  Sex: Female

DRUGS (1)
  1. SOMATULINE [Suspect]
     Indication: NEUROENDOCRINE TUMOUR
     Dosage: 120 MG
     Route: 058
     Dates: start: 20090211, end: 20140120

REACTIONS (2)
  - Death [Fatal]
  - Dyspnoea [Unknown]
